FAERS Safety Report 4456919-9 (Version None)
Quarter: 2004Q3

REPORT INFORMATION
  Report Type: 
  Country: None (occurrence: None)
  Receive Date: 20040923
  Receipt Date: 20040921
  Transmission Date: 20050211
  Serious: Yes (Hospitalization)
  Sender: FDA-Public Use
  Company Number: FR-ROCHE-381031

PATIENT
  Age: 39 Year
  Sex: Female
  Weight: 44 kg

DRUGS (3)
  1. ROACCUTANE [Suspect]
     Indication: ACNE
     Route: 048
     Dates: start: 20031125, end: 20040126
  2. ROACCUTANE [Suspect]
     Route: 048
     Dates: start: 20040127, end: 20040228
  3. ROACCUTANE [Suspect]
     Route: 048
     Dates: start: 20040301, end: 20040430

REACTIONS (1)
  - MULTIPLE SCLEROSIS [None]
